FAERS Safety Report 9915029 (Version 1)
Quarter: 2014Q1

REPORT INFORMATION
  Report Type: Report from Study
  Country: BR (occurrence: BR)
  Receive Date: 20140220
  Receipt Date: 20140220
  Transmission Date: 20141002
  Serious: Yes (Hospitalization, Other)
  Sender: FDA-Public Use
  Company Number: PHHY2014BR021120

PATIENT
  Age: 68 Year
  Sex: Male
  Weight: 66 kg

DRUGS (4)
  1. DIOVAN AMLO FIX [Suspect]
     Indication: HYPERTENSION
     Dosage: 1 DF (80/5MG), QD (AT NIGHT)
     Route: 048
     Dates: end: 20140216
  2. AMIODARONE [Concomitant]
     Indication: CARDIAC DISORDER
     Dosage: 200 MG, UNK
     Dates: start: 20121128
  3. LIPITOR [Concomitant]
     Indication: BLOOD CHOLESTEROL ABNORMAL
     Dosage: 20 MG, UNK
  4. XARELTO [Concomitant]
     Indication: ANTICOAGULANT THERAPY
     Dosage: 16 MG, UNK

REACTIONS (8)
  - Cardiac fibrillation [Unknown]
  - Arrhythmia [Unknown]
  - Syncope [Unknown]
  - Fall [Unknown]
  - Malaise [Unknown]
  - Fatigue [Unknown]
  - Asthenia [Unknown]
  - Blood pressure increased [Unknown]
